FAERS Safety Report 8903807 (Version 2)
Quarter: 2012Q4

REPORT INFORMATION
  Report Type: Report from Study
  Country: JP (occurrence: JP)
  Receive Date: 20121113
  Receipt Date: 20121217
  Transmission Date: 20130627
  Serious: Yes (Hospitalization)
  Sender: FDA-Public Use
  Company Number: JP-JNJFOC-20120512506

PATIENT
  Age: 52 Year
  Sex: Male

DRUGS (6)
  1. STELARA [Suspect]
     Indication: PSORIASIS
     Route: 058
     Dates: start: 20110711
  2. STELARA [Suspect]
     Indication: PSORIASIS
     Route: 058
     Dates: start: 20110812
  3. STELARA [Suspect]
     Indication: PSORIASIS
     Route: 058
     Dates: start: 20111111
  4. DOVONEX [Concomitant]
     Indication: PSORIASIS
     Route: 061
  5. MYSER [Concomitant]
     Indication: PSORIASIS
     Route: 061
  6. INSULIN [Concomitant]

REACTIONS (2)
  - Pyrexia [Recovered/Resolved]
  - Proctalgia [Recovered/Resolved]
